FAERS Safety Report 12365116 (Version 1)
Quarter: 2016Q2

REPORT INFORMATION
  Report Type: Spontaneous
  Country: US (occurrence: US)
  Receive Date: 20160512
  Receipt Date: 20160512
  Transmission Date: 20160815
  Serious: Yes (Other)
  Sender: FDA-Public Use
  Company Number: US-TEVA-658852USA

PATIENT
  Age: 52 Year
  Sex: Female

DRUGS (3)
  1. ZECUITY [Suspect]
     Active Substance: SUMATRIPTAN SUCCINATE
     Indication: HEADACHE
     Route: 062
     Dates: start: 201602, end: 201602
  2. ZECUITY [Suspect]
     Active Substance: SUMATRIPTAN SUCCINATE
     Route: 062
     Dates: start: 20160505, end: 20160505
  3. ZECUITY [Suspect]
     Active Substance: SUMATRIPTAN SUCCINATE
     Route: 062
     Dates: start: 20160506, end: 20160506

REACTIONS (7)
  - Device battery issue [Unknown]
  - Application site inflammation [Unknown]
  - Application site pain [Unknown]
  - Sunburn [Unknown]
  - Application site erythema [Unknown]
  - Application site discolouration [Unknown]
  - Drug effect incomplete [Unknown]

NARRATIVE: CASE EVENT DATE: 201602
